FAERS Safety Report 8120882-X (Version None)
Quarter: 2012Q1

REPORT INFORMATION
  Report Type: 
  Country: None (occurrence: None)
  Receive Date: 20120203
  Receipt Date: 20120126
  Transmission Date: 20120608
  Serious: Yes (Other)
  Sender: FDA-Public Use
  Company Number: 1000027468

PATIENT
  Age: 44 Year
  Sex: Male

DRUGS (11)
  1. GNKGO BILOBA (GINKGO BILOBA) (GINKGO BILOBA) [Concomitant]
  2. CALCIUM (CALCIUM) (CALCIUM) [Concomitant]
  3. VIIBRYD [Suspect]
     Indication: DEPRESSION
     Dosage: 10 MG (10 MG,1 IN 1 D),ORAL ; 20 MG (20 MG,1 IN 1 D),ORAL
     Route: 048
     Dates: start: 20111212, end: 20111218
  4. VIIBRYD [Suspect]
     Indication: DEPRESSION
     Dosage: 10 MG (10 MG,1 IN 1 D),ORAL ; 20 MG (20 MG,1 IN 1 D),ORAL
     Route: 048
     Dates: start: 20111205, end: 20111211
  5. CLONAZEPAM [Concomitant]
  6. MAGNESIUM (MAGNESIUM) (MAGNESIUM) [Concomitant]
  7. ZINC WITH VITAMIN D3 (ZINC,VITAMIN D3) (ZINC, VITAMIN D3) [Concomitant]
  8. SUPER B COMPLEX WITH VITAMIN C AND FOLIC ACID (SUPER B COMPLEX, VITAMI [Concomitant]
  9. LIPOFLAVONOID (LIPOFLAVONOID) (LIPOFLAVONOID) [Concomitant]
  10. VIIBRYD [Suspect]
     Indication: DEPRESSION
     Dosage: 40 MG (40 MG,1 IN 1 D),ORAL
     Route: 048
     Dates: start: 20111219, end: 20111230
  11. MEN'S VITAMINS (MEN'S VITAMINS) (MEN'S VITAMINS) [Concomitant]

REACTIONS (7)
  - HALLUCINATION, AUDITORY [None]
  - SPEECH DISORDER [None]
  - ABNORMAL DREAMS [None]
  - TINNITUS [None]
  - VISUAL IMPAIRMENT [None]
  - PARAESTHESIA [None]
  - EXTRAPYRAMIDAL DISORDER [None]
